FAERS Safety Report 4673949-2 (Version None)
Quarter: 2005Q2

REPORT INFORMATION
  Report Type: 
  Country: None (occurrence: None)
  Receive Date: 20050525
  Receipt Date: 20050316
  Transmission Date: 20051028
  Serious: Yes (Hospitalization)
  Sender: FDA-Public Use
  Company Number: US-MERCK-0503USA02850

PATIENT
  Sex: Male

DRUGS (2)
  1. HYZAAR [Suspect]
     Route: 048
  2. HYZAAR [Suspect]
     Route: 048

REACTIONS (2)
  - ELECTROLYTE IMBALANCE [None]
  - INFLUENZA [None]
